FAERS Safety Report 5595061-0 (Version None)
Quarter: 2008Q1

REPORT INFORMATION
  Report Type: 
  Country: None (occurrence: None)
  Receive Date: 20080117
  Receipt Date: 20080110
  Transmission Date: 20080703
  Serious: Yes (Life-Threatening, Hospitalization, Other)
  Sender: FDA-Public Use
  Company Number: HQWYE732106MAR07

PATIENT
  Sex: Male
  Weight: 82 kg

DRUGS (1)
  1. GEMTUZUMAB OZOGAMICIN [Suspect]
     Indication: ACUTE MYELOID LEUKAEMIA
     Dosage: SINGLE DOSE: 12.0 MG; CUMULATIVE DOSE: 24 MG
     Route: 065
     Dates: start: 20060403, end: 20060422

REACTIONS (4)
  - ACUTE RESPIRATORY DISTRESS SYNDROME [None]
  - LUNG INFECTION PSEUDOMONAL [None]
  - PYREXIA [None]
  - TUBERCULOSIS [None]
